FAERS Safety Report 8122420-4 (Version None)
Quarter: 2012Q1

REPORT INFORMATION
  Report Type: 
  Country: None (occurrence: None)
  Receive Date: 20120208
  Receipt Date: 20120202
  Transmission Date: 20120608
  Serious: Yes (Hospitalization)
  Sender: FDA-Public Use
  Company Number: BE-GLAXOSMITHKLINE-B0779680A

PATIENT
  Sex: Male

DRUGS (1)
  1. DUTASTERIDE/TAMSULOSIN HYDROCHLORIDE [Suspect]
     Indication: PRODUCT USED FOR UNKNOWN INDICATION
     Route: 065
     Dates: start: 20111121

REACTIONS (5)
  - PERICARDITIS [None]
  - TACHYCARDIA PAROXYSMAL [None]
  - PERICARDIAL EFFUSION [None]
  - GENERALISED OEDEMA [None]
  - ARRHYTHMIA [None]
